FAERS Safety Report 5646972-9 (Version None)
Quarter: 2008Q1

REPORT INFORMATION
  Report Type: 
  Country: None (occurrence: None)
  Receive Date: 20080303
  Receipt Date: 20080228
  Transmission Date: 20080703
  Serious: Yes (Death, Hospitalization)
  Sender: FDA-Public Use
  Company Number: B0492726A

PATIENT
  Age: 78 Year
  Sex: Male
  Weight: 92 kg

DRUGS (7)
  1. ARIXTRA [Suspect]
     Dosage: 2.5MG PER DAY
     Route: 058
     Dates: start: 20070911
  2. CORTICOIDS [Concomitant]
     Indication: ASTHMA
     Route: 055
  3. CORTICOIDS [Concomitant]
     Indication: POLYARTHRITIS
     Route: 048
  4. PLAVIX [Concomitant]
     Dosage: 1TAB PER DAY
     Route: 048
     Dates: end: 20070101
  5. FOZITEC [Concomitant]
  6. FOSINOPRIL SODIUM AND HYDROCHLOROTHIAZIDE [Concomitant]
     Indication: ARTERITIS
  7. CELESTONE [Concomitant]
     Dosage: .5MG ALTERNATE DAYS

REACTIONS (16)
  - ANAEMIA [None]
  - BLOOD BLISTER [None]
  - CARDIAC ARREST [None]
  - CHRONIC RESPIRATORY FAILURE [None]
  - CLOSTRIDIUM DIFFICILE COLITIS [None]
  - GANGRENE [None]
  - GASTROINTESTINAL DISORDER [None]
  - HAEMATOMA [None]
  - MULTI-ORGAN FAILURE [None]
  - OEDEMA PERIPHERAL [None]
  - POST PROCEDURAL HAEMATOMA [None]
  - PURULENCE [None]
  - RENAL FAILURE [None]
  - SKIN INFLAMMATION [None]
  - SKIN NECROSIS [None]
  - STAPHYLOCOCCAL INFECTION [None]
